FAERS Safety Report 6719366-2 (Version None)
Quarter: 2010Q2

REPORT INFORMATION
  Report Type: 
  Country: None (occurrence: None)
  Receive Date: 20100507
  Receipt Date: 20100428
  Transmission Date: 20101027
  Serious: No
  Sender: FDA-Public Use
  Company Number: 011246

PATIENT
  Age: 14 Year
  Sex: Female
  Weight: 31.9 kg

DRUGS (1)
  1. LEVETIRACETAM [Suspect]
     Dosage: 1600 MG, 50.2MG/KG - 85UG/ML; INTRAVENOUS (NOT OTHERWISE SPECIFIED)
     Route: 042

REACTIONS (1)
  - RESPIRATORY FAILURE [None]
